FAERS Safety Report 19440887 (Version 3)
Quarter: 2021Q3

REPORT INFORMATION
  Report Type: Spontaneous
  Country: ES (occurrence: ES)
  Receive Date: 20210621
  Receipt Date: 20210721
  Transmission Date: 20211014
  Serious: Yes (Hospitalization, Other)
  Sender: FDA-Public Use
  Company Number: ES-AMGEN-ESPSP2021091857

PATIENT
  Age: 73 Year
  Sex: Female

DRUGS (2)
  1. FOLFOX [Concomitant]
     Active Substance: FLUOROURACIL\LEUCOVORIN CALCIUM\OXALIPLATIN
     Dosage: UNK
     Dates: start: 20210531
  2. MVASI [Suspect]
     Active Substance: BEVACIZUMAB-AWWB
     Indication: COLON NEOPLASM
     Dosage: UNK
     Route: 065
     Dates: start: 20210531

REACTIONS (3)
  - Gastric perforation [Recovered/Resolved]
  - Peritonitis [Unknown]
  - Tumour perforation [Recovered/Resolved]

NARRATIVE: CASE EVENT DATE: 202106
